FAERS Safety Report 21250518 (Version 1)
Quarter: 2022Q3

REPORT INFORMATION
  Report Type: Spontaneous
  Country: US (occurrence: US)
  Receive Date: 20220824
  Receipt Date: 20220824
  Transmission Date: 20221027
  Serious: Yes (Death, Other)
  Sender: FDA-Public Use
  Company Number: US-SA-SAC20220824000519

PATIENT
  Sex: Male

DRUGS (1)
  1. DUPIXENT [Suspect]
     Active Substance: DUPILUMAB
     Indication: Dermatitis atopic
     Dosage: UNK
     Route: 058
     Dates: start: 20220601

REACTIONS (1)
  - Death [Fatal]

NARRATIVE: CASE EVENT DATE: 20220801
